FAERS Safety Report 17812401 (Version 2)
Quarter: 2025Q2

REPORT INFORMATION
  Report Type: Spontaneous
  Country: US (occurrence: US)
  Receive Date: 20200521
  Receipt Date: 20250516
  Transmission Date: 20250717
  Serious: No
  Sender: COHERUS
  Company Number: US-COHERUS BIOSCIENCES, INC-2019US006065

PATIENT

DRUGS (1)
  1. UDENYCA [Suspect]
     Active Substance: PEGFILGRASTIM-CBQV
     Indication: Product used for unknown indication

REACTIONS (3)
  - Wrong product stored [Unknown]
  - Product dispensing error [Unknown]
  - Product label confusion [Unknown]

NARRATIVE: CASE EVENT DATE: 20190101
